FAERS Safety Report 7633462-7 (Version None)
Quarter: 2011Q3

REPORT INFORMATION
  Report Type: 
  Country: None (occurrence: None)
  Receive Date: 20110725
  Receipt Date: 20110421
  Transmission Date: 20111222
  Serious: Yes (Hospitalization)
  Sender: FDA-Public Use
  Company Number: US-BRISTOL-MYERS SQUIBB COMPANY-15582992

PATIENT
  Age: 84 Year
  Weight: 74 kg

DRUGS (7)
  1. AVODART [Concomitant]
     Dosage: CAP
  2. SPRYCEL [Suspect]
     Indication: CHRONIC MYELOID LEUKAEMIA
     Dosage: 20MG TAB,40MG BID
     Route: 048
     Dates: start: 20100501
  3. ASPIRIN [Concomitant]
     Dosage: TAB
  4. ATENOLOL [Concomitant]
     Dosage: TAB
  5. UROXATRAL [Concomitant]
     Dosage: TAB
  6. DIGOXIN [Concomitant]
     Dosage: TAB
  7. PREDNISONE [Concomitant]
     Dosage: TAB

REACTIONS (1)
  - PLEURAL EFFUSION [None]
